FAERS Safety Report 6197743-9 (Version None)
Quarter: 2009Q2

REPORT INFORMATION
  Report Type: 
  Country: None (occurrence: None)
  Receive Date: 20090521
  Receipt Date: 20090511
  Transmission Date: 20091009
  Serious: Yes (Hospitalization, Other)
  Sender: FDA-Public Use
  Company Number: GB-ELI_LILLY_AND_COMPANY-GB200904004649

PATIENT
  Age: 65 Year
  Sex: Female

DRUGS (3)
  1. ZYPREXA [Suspect]
     Indication: BIPOLAR DISORDER
     Dosage: 7.5 MG, DAILY (1/D)
     Dates: start: 20080601
  2. LAMOTRIGINE [Concomitant]
  3. EPILIM [Concomitant]

REACTIONS (4)
  - AMAUROSIS FUGAX [None]
  - DISEASE RECURRENCE [None]
  - RETINAL INFARCTION [None]
  - RETINAL ISCHAEMIA [None]
